FAERS Safety Report 7223807-4 (Version None)
Quarter: 2011Q1

REPORT INFORMATION
  Report Type: 
  Country: None (occurrence: None)
  Receive Date: 20110112
  Receipt Date: 20101208
  Transmission Date: 20110831
  Serious: No
  Sender: FDA-Public Use
  Company Number: US-ALLERGAN-1015935US

PATIENT
  Age: 57 Year
  Sex: Female

DRUGS (2)
  1. ARTIFICIAL TEARS                   /00445101/ [Concomitant]
     Indication: DRY EYE
     Dosage: UNK
     Route: 047
  2. RESTASIS [Suspect]
     Indication: DRY EYE
     Dosage: 1 GTT, BID
     Route: 047
     Dates: start: 20101104, end: 20101204

REACTIONS (4)
  - DRY EYE [None]
  - OCULAR HYPERAEMIA [None]
  - EYE PAIN [None]
  - EYE DISCHARGE [None]
